FAERS Safety Report 17826907 (Version 5)
Quarter: 2021Q4

REPORT INFORMATION
  Report Type: Report from Study
  Country: TW (occurrence: TW)
  Receive Date: 20200526
  Receipt Date: 20211019
  Transmission Date: 20220303
  Serious: Yes (Hospitalization, Other)
  Sender: FDA-Public Use
  Company Number: NVSC2020TW141643

PATIENT
  Age: 65 Year
  Sex: Female
  Weight: 57 kg

DRUGS (14)
  1. LETROZOLE [Suspect]
     Active Substance: LETROZOLE
     Indication: Breast cancer
     Dosage: 2.5 MG, QD
     Route: 048
     Dates: start: 20140604
  2. LETROZOLE [Suspect]
     Active Substance: LETROZOLE
     Dosage: UNK
     Route: 065
     Dates: start: 20210210, end: 20210302
  3. LETROZOLE [Suspect]
     Active Substance: LETROZOLE
     Dosage: UNK
     Route: 065
     Dates: start: 20210303
  4. ZOMETA [Suspect]
     Active Substance: ZOLEDRONIC ACID
     Indication: Metastases to bone
     Dosage: 4 MG/VIAL, QMO
     Route: 065
     Dates: start: 20140512, end: 20160921
  5. ZOMETA [Suspect]
     Active Substance: ZOLEDRONIC ACID
     Dosage: 4 MG/VIAL, Q2MO
     Route: 065
     Dates: start: 20161116, end: 20180725
  6. ZOMETA [Suspect]
     Active Substance: ZOLEDRONIC ACID
     Dosage: 4 MG/VIAL, Q3MO
     Route: 065
     Dates: start: 20181114, end: 20190306
  7. PALBOCICLIB [Suspect]
     Active Substance: PALBOCICLIB
     Indication: Breast cancer
     Dosage: UNK, CYCLIC (ONCE DAILY, 3 WEEKS ON, 1 WEEK OFF EVERY 28 DAYS)
     Route: 048
     Dates: start: 20140604
  8. PALBOCICLIB [Suspect]
     Active Substance: PALBOCICLIB
     Dosage: UNK
     Route: 065
     Dates: start: 20210210, end: 20210302
  9. DIOVAN [Concomitant]
     Active Substance: VALSARTAN
     Indication: Hypertension
     Dosage: UNK
     Route: 065
     Dates: start: 20150506
  10. GLIMEPIRIDE [Concomitant]
     Active Substance: GLIMEPIRIDE
     Indication: Diabetes mellitus
     Dosage: UNK
     Route: 048
     Dates: start: 20190529
  11. GABAPENTIN [Concomitant]
     Active Substance: GABAPENTIN
     Indication: Trigeminal neuralgia
     Dosage: UNK
     Route: 048
     Dates: start: 20200325
  12. DICLOFENAC [Concomitant]
     Active Substance: DICLOFENAC
     Indication: Trigeminal neuralgia
     Dosage: UNK
     Route: 048
     Dates: start: 20200325
  13. ACETAMINOPHEN\TRAMADOL [Concomitant]
     Active Substance: ACETAMINOPHEN\TRAMADOL
     Indication: Trigeminal neuralgia
     Dosage: UNK
     Route: 048
     Dates: start: 20200414, end: 20200420
  14. SENNOSIDES [Concomitant]
     Active Substance: SENNOSIDES
     Indication: Prophylaxis
     Dosage: UNK
     Route: 065
     Dates: start: 20200624

REACTIONS (9)
  - Osteonecrosis of jaw [Recovered/Resolved with Sequelae]
  - Epilepsy [Recovered/Resolved]
  - Atrial fibrillation [Recovered/Resolved]
  - Neutropenia [Recovered/Resolved]
  - Arthralgia [Not Recovered/Not Resolved]
  - Conjunctivitis [Not Recovered/Not Resolved]
  - Constipation [Recovered/Resolved]
  - Chest discomfort [Recovered/Resolved]
  - Hypersensitivity [Recovered/Resolved]

NARRATIVE: CASE EVENT DATE: 20200421
